FAERS Safety Report 5082715-8 (Version None)
Quarter: 2006Q3

REPORT INFORMATION
  Report Type: 
  Country: None (occurrence: None)
  Receive Date: 20060814
  Receipt Date: 20060807
  Transmission Date: 20061208
  Serious: Yes (Death)
  Sender: FDA-Public Use
  Company Number: 227174

PATIENT
  Age: 68 Year
  Sex: Male
  Weight: 56.9 kg

DRUGS (4)
  1. AVASTIN [Suspect]
     Indication: NON-SMALL CELL LUNG CANCER
     Dosage: 15 MG/KG, Q3W, INTRAVENOUS
     Route: 042
     Dates: start: 20060517, end: 20060517
  2. ERLOTINIB(ERLOTINIB) TABLET [Suspect]
     Indication: NON-SMALL CELL LUNG CANCER
     Dosage: 150 MG, QD
     Dates: start: 20060627, end: 20060627
  3. CARBOPLATIN [Suspect]
     Indication: NON-SMALL CELL LUNG CANCER
  4. TAXOL [Suspect]
     Indication: NON-SMALL CELL LUNG CANCER

REACTIONS (4)
  - ASTHENIA [None]
  - DISEASE PROGRESSION [None]
  - HYPERHIDROSIS [None]
  - LOSS OF CONSCIOUSNESS [None]
